FAERS Safety Report 11127858 (Version 1)
Quarter: 2015Q2

REPORT INFORMATION
  Report Type: Spontaneous
  Country: None (occurrence: None)
  Receive Date: 20150520
  Receipt Date: 20150520
  Transmission Date: 20150821
  Serious: No
  Sender: FDA-Public Use
  Company Number: None

PATIENT
  Age: 30 Year
  Sex: Female
  Weight: 58.97 kg

DRUGS (3)
  1. PRE NATAL [Concomitant]
  2. CLOMID [Concomitant]
     Active Substance: CLOMIPHENE CITRATE
  3. OVIDREL [Suspect]
     Active Substance: CHORIOGONADOTROPIN ALFA
     Indication: INFERTILITY
     Dosage: DAY 14 OF CYCLE
     Route: 058

REACTIONS (7)
  - Heart rate increased [None]
  - Urticaria [None]
  - Eyelid oedema [None]
  - Flushing [None]
  - Injection site urticaria [None]
  - Pharyngeal oedema [None]
  - Pruritus generalised [None]

NARRATIVE: CASE EVENT DATE: 20150519
